FAERS Safety Report 9586208 (Version 1)
Quarter: 2013Q4

REPORT INFORMATION
  Report Type: Spontaneous
  Country: US (occurrence: None)
  Receive Date: 20131002
  Receipt Date: 20131002
  Transmission Date: 20140711
  Serious: Yes (Hospitalization)
  Sender: FDA-Public Use
  Company Number: None

PATIENT
  Age: 57 Year
  Sex: Female
  Weight: 86.18 kg

DRUGS (8)
  1. JANUVIA [Suspect]
     Indication: BLOOD GLUCOSE ABNORMAL
     Route: 048
     Dates: start: 20120510, end: 20130910
  2. ATENOLOL [Concomitant]
  3. NEURONTIN [Concomitant]
  4. LISINOPRIL [Concomitant]
  5. SIMVASTATIN [Concomitant]
  6. TRAMADOL [Concomitant]
  7. METFORMIN [Concomitant]
  8. MULTIVITAMIN [Concomitant]

REACTIONS (2)
  - Vomiting [None]
  - Abdominal pain [None]
